FAERS Safety Report 16631594 (Version 1)
Quarter: 2019Q3

REPORT INFORMATION
  Report Type: Spontaneous
  Country: DE (occurrence: DE)
  Receive Date: 20190725
  Receipt Date: 20190725
  Transmission Date: 20191004
  Serious: Yes (Hospitalization)
  Sender: FDA-Public Use
  Company Number: DE-PFIZER INC-2019310309

PATIENT
  Age: 59 Year
  Sex: Male
  Weight: 81 kg

DRUGS (13)
  1. CEFUROXIME. [Suspect]
     Active Substance: CEFUROXIME
     Dosage: UNK NK NK, SINGLE INTRAOPERATIVE
     Route: 042
  2. ENOXAPARIN [Concomitant]
     Active Substance: ENOXAPARIN
     Dosage: 0.4 ML, 1X/DAY FOR 4 WEEKS
     Route: 058
  3. METOPROLOL. [Concomitant]
     Active Substance: METOPROLOL
     Dosage: 50 MG, UNK 0.5-0-0-0
     Route: 048
  4. FENTANYL. [Suspect]
     Active Substance: FENTANYL
     Dosage: NK NK, INTRAOPERATIVE ANESTHESIA
     Route: 042
  5. AKRINOR [Suspect]
     Active Substance: CAFEDRINE HYDROCHLORIDE\THEODRENALINE
     Dosage: UNK INTRAOPERATIVE NARCOSIS, SOLUTION FOR INJECTION / INFUSION
     Route: 042
  6. PROPOFOL. [Suspect]
     Active Substance: PROPOFOL
     Dosage: UNK NK NK, INTRAOPERATIVE NARCOSIS, SOLUTION FOR INJECTION / INFUSION
     Route: 042
  7. PANTOPRAZOL [PANTOPRAZOLE] [Concomitant]
     Active Substance: PANTOPRAZOLE
     Dosage: 40 MG, UNK 1-0-0-0
     Route: 048
  8. COAPROVEL [Concomitant]
     Active Substance: HYDROCHLOROTHIAZIDE\IRBESARTAN
     Dosage: UNK 150|12.5 MG, 1-0-0-0,
     Route: 048
  9. PIRITRAMIDE [Suspect]
     Active Substance: PIRITRAMIDE
     Dosage: UNK NK NK, INTRAOPERATIVE NARCOSIS, SOLUTION FOR INJECTION / INFUSION
     Route: 042
  10. APROVEL [Concomitant]
     Active Substance: IRBESARTAN
     Dosage: 75 MG, UNK 0-0-1-0
     Route: 048
  11. METAMIZOLE [Concomitant]
     Active Substance: METAMIZOLE
     Dosage: 500 MG, AS NEEDED
     Route: 048
  12. LEVOFLOXACIN. [Suspect]
     Active Substance: LEVOFLOXACIN
     Dosage: UNK
     Route: 048
     Dates: end: 20180319
  13. DESFLURANE. [Suspect]
     Active Substance: DESFLURANE
     Dosage: UNK NK NK, INTRAOPERATIVE ANESTHESIA, INHALATION ANESTHETIC
     Route: 055

REACTIONS (2)
  - Systemic infection [Unknown]
  - Hepatic enzyme increased [Unknown]
